FAERS Safety Report 12708068 (Version 1)
Quarter: 2016Q3

REPORT INFORMATION
  Report Type: Spontaneous
  Country: FR (occurrence: FR)
  Receive Date: 20160901
  Receipt Date: 20160901
  Transmission Date: 20161109
  Serious: Yes (Hospitalization)
  Sender: FDA-Public Use
  Company Number: FR-ASTRAZENECA-2016SE92214

PATIENT
  Age: 4332 Day
  Sex: Male
  Weight: 48 kg

DRUGS (10)
  1. INEXIUM [Suspect]
     Active Substance: ESOMEPRAZOLE
     Indication: GASTRITIS PROPHYLAXIS
     Route: 048
     Dates: start: 20160704, end: 20160805
  2. DOLIPRANE [Concomitant]
     Active Substance: ACETAMINOPHEN
  3. D VITAMIN [Concomitant]
  4. METHYLPREDNISOLONE. [Suspect]
     Active Substance: METHYLPREDNISOLONE
     Indication: LYMPHOMA
     Route: 040
     Dates: start: 20160704, end: 20160804
  5. VINCRISTINE [Suspect]
     Active Substance: VINCRISTINE
     Indication: LYMPHOMA
     Dosage: 2.0MG EVERY CYCLE
     Route: 040
     Dates: start: 20160711, end: 20160801
  6. CERUBIDINE [Suspect]
     Active Substance: DAUNORUBICIN HYDROCHLORIDE
     Indication: LYMPHOMA
     Dosage: 44.0MG EVERY CYCLE
     Route: 040
     Dates: start: 20160711, end: 20160801
  7. SPASFON [Concomitant]
     Active Substance: PHLOROGLUCINOL
  8. CALCIUM [Concomitant]
     Active Substance: CALCIUM
  9. KIDROLASE [Suspect]
     Active Substance: ASPARAGINASE
     Indication: LYMPHOMA
     Dosage: 15000.0IU EVERY CYCLE
     Route: 040
     Dates: start: 20160715, end: 20160802
  10. BACTRIM [Suspect]
     Active Substance: SULFAMETHOXAZOLE\TRIMETHOPRIM
     Indication: INFECTION PROPHYLAXIS
     Dosage: 0.4286 DF, THREE TIMES A WEEK
     Route: 048
     Dates: start: 20160704, end: 20160803

REACTIONS (6)
  - Hepatocellular injury [Recovering/Resolving]
  - Gamma-glutamyltransferase increased [Recovering/Resolving]
  - Hepatic steatosis [Recovering/Resolving]
  - Hepatomegaly [Recovering/Resolving]
  - Splenomegaly [Recovering/Resolving]
  - Jaundice [Recovering/Resolving]

NARRATIVE: CASE EVENT DATE: 20160718
